FAERS Safety Report 5152297-0 (Version None)
Quarter: 2006Q4

REPORT INFORMATION
  Report Type: 
  Country: None (occurrence: None)
  Receive Date: 20061116
  Receipt Date: 20061108
  Transmission Date: 20070319
  Serious: Yes (Hospitalization)
  Sender: FDA-Public Use
  Company Number: US-AVENTIS-200621590GDDC

PATIENT
  Age: 69 Year
  Sex: Male
  Weight: 78.02 kg

DRUGS (12)
  1. TAXOTERE [Suspect]
     Indication: LEIOMYOSARCOMA
     Route: 042
     Dates: start: 20061006, end: 20061006
  2. GEMCITABINE [Suspect]
     Indication: LEIOMYOSARCOMA
     Dates: start: 20061006, end: 20061006
  3. ASPIRIN [Concomitant]
     Dosage: DOSE: UNK
  4. CARDURA                            /00639301/ [Concomitant]
     Dosage: DOSE: UNK
  5. ENOXAPARIN SODIUM [Concomitant]
     Dosage: DOSE: UNK
  6. FLOMAX [Concomitant]
     Dosage: DOSE: UNK
  7. LASIX [Concomitant]
     Dosage: DOSE: UNK
  8. LIPITOR [Concomitant]
     Dosage: DOSE: UNK
  9. LOTREL                             /01289101/ [Concomitant]
     Dosage: DOSE: UNK
  10. POTASSIUM CHLORIDE [Concomitant]
     Dosage: DOSE: UNK
  11. ZAROXOLYN [Concomitant]
     Dosage: DOSE: UNK
  12. OXYCODONE HCL [Concomitant]
     Dosage: DOSE: UNK
     Route: 060

REACTIONS (3)
  - ATELECTASIS [None]
  - DEEP VEIN THROMBOSIS [None]
  - OEDEMA PERIPHERAL [None]
